FAERS Safety Report 8840737 (Version 3)
Quarter: 2013Q2

REPORT INFORMATION
  Report Type: Report from Study
  Country: JP (occurrence: JP)
  Receive Date: 20121015
  Receipt Date: 20130620
  Transmission Date: 20140414
  Serious: Yes (Other)
  Sender: FDA-Public Use
  Company Number: JP-VERTEX PHARMACEUTICAL INC.-AE-2012-008526

PATIENT
  Age: 70 Year
  Sex: Male

DRUGS (6)
  1. VX-950 (TELAPREVIR) [Suspect]
     Indication: CHRONIC HEPATITIS C
     Dosage: 2250 MG, QD
     Route: 048
     Dates: start: 20120419, end: 20120501
  2. RIBAVIRIN [Suspect]
     Indication: CHRONIC HEPATITIS C
     Dosage: 800 MG, QD
     Route: 048
     Dates: start: 20120419, end: 20120501
  3. PEGINTERFERON ALFA-2B [Suspect]
     Indication: CHRONIC HEPATITIS C
     Dosage: 1.5 ?G/KG, QW
     Route: 058
     Dates: start: 20120419, end: 20120501
  4. RHYTHMY [Concomitant]
     Dosage: 1 MG, QD/PRN
     Route: 048
     Dates: end: 20120428
  5. FAMOTIDINE [Concomitant]
     Dosage: 20 MG, QD
     Route: 048
     Dates: start: 20120423, end: 20120428
  6. BROTIZOLAM [Concomitant]
     Dosage: 0.5 MG, QD/PRN
     Route: 048
     Dates: end: 20120428

REACTIONS (1)
  - Delirium [Recovered/Resolved]
